FAERS Safety Report 7734696-3 (Version None)
Quarter: 2011Q3

REPORT INFORMATION
  Report Type: 
  Country: None (occurrence: None)
  Receive Date: 20110907
  Receipt Date: 20110826
  Transmission Date: 20111222
  Serious: Yes (Other)
  Sender: FDA-Public Use
  Company Number: CA-ELI_LILLY_AND_COMPANY-CA201108008098

PATIENT
  Sex: Female

DRUGS (20)
  1. VALPROATE SODIUM [Concomitant]
  2. CLOPIXOL [Concomitant]
  3. CLONAZEPAM [Concomitant]
  4. LOXAPINE HCL [Concomitant]
  5. COGENTIN [Concomitant]
  6. LORAZEPAM [Concomitant]
  7. ZYPREXA [Suspect]
     Dosage: 15 MG, EACH EVENING
  8. ZYPREXA [Suspect]
     Dosage: 5 MG, EACH EVENING
  9. LUVOX [Concomitant]
  10. PROCYCLIDINE HYDROCHLORIDE 2MG TAB [Concomitant]
  11. SIMVASTATIN [Concomitant]
  12. ZYPREXA [Suspect]
     Dosage: 10 MG, EACH EVENING
  13. ZYPREXA [Suspect]
     Dosage: 12.5 MG, EACH EVENING
  14. ZYPREXA [Suspect]
     Dosage: 17.5 MG, EACH EVENING
  15. DURALITH [Concomitant]
  16. GABAPENTIN [Concomitant]
  17. LIPITOR [Concomitant]
  18. ZYPREXA [Suspect]
     Indication: SCHIZOAFFECTIVE DISORDER
     Dosage: 7.5 MG, EACH EVENING
  19. ZYPREXA [Suspect]
     Dosage: 20 MG, EACH EVENING
  20. ZYPREXA ZYDIS [Suspect]
     Indication: SCHIZOAFFECTIVE DISORDER

REACTIONS (6)
  - HYPERGLYCAEMIA [None]
  - NEPHROGENIC DIABETES INSIPIDUS [None]
  - NEPHROSCLEROSIS [None]
  - HYPERTENSION [None]
  - TYPE 2 DIABETES MELLITUS [None]
  - BLOOD TRIGLYCERIDES INCREASED [None]
